FAERS Safety Report 5974406-3 (Version None)
Quarter: 2008Q4

REPORT INFORMATION
  Report Type: 
  Country: None (occurrence: None)
  Receive Date: 20081128
  Receipt Date: 20081112
  Transmission Date: 20090506
  Serious: Yes (Hospitalization)
  Sender: FDA-Public Use
  Company Number: 8039415

PATIENT
  Age: 76 Year
  Sex: Female
  Weight: 53.5 kg

DRUGS (9)
  1. CIMZIA [Suspect]
     Indication: CROHN'S DISEASE
     Dosage: 400 MG SC
     Route: 058
     Dates: start: 20080718, end: 20081101
  2. PREDNISONE /00044702/ [Concomitant]
  3. LISINOPRIL /00894002/ [Concomitant]
  4. ATENOLOL [Concomitant]
  5. FOLIC ACID [Concomitant]
  6. MULTIVITAMIN /01229101/ [Concomitant]
  7. TYLENOL W/ CODEINE [Concomitant]
  8. CALCIUM [Concomitant]
  9. FLUOROURACIL /00098802/ [Concomitant]

REACTIONS (1)
  - CELLULITIS [None]
